FAERS Safety Report 6669292-2 (Version None)
Quarter: 2010Q2

REPORT INFORMATION
  Report Type: 
  Country: None (occurrence: None)
  Receive Date: 20100402
  Receipt Date: 20100326
  Transmission Date: 20101027
  Serious: Yes (Hospitalization)
  Sender: FDA-Public Use
  Company Number: PIR# 1003055

PATIENT
  Age: 51 Year
  Sex: Female

DRUGS (1)
  1. SORBITOL FOR IRRIGATION [Suspect]

REACTIONS (10)
  - ACIDOSIS [None]
  - BLOOD CALCIUM DECREASED [None]
  - BLOOD PRESSURE DECREASED [None]
  - DRUG EFFECT DECREASED [None]
  - ELECTROCARDIOGRAM QT PROLONGED [None]
  - HAEMORRHAGE [None]
  - HYPONATRAEMIA [None]
  - IATROGENIC INJURY [None]
  - PROCEDURAL COMPLICATION [None]
  - WATER INTOXICATION [None]
